FAERS Safety Report 8806580 (Version 3)
Quarter: 2013Q3

REPORT INFORMATION
  Report Type: Spontaneous
  Country: US (occurrence: US)
  Receive Date: 20120925
  Receipt Date: 20130813
  Transmission Date: 20140515
  Serious: Yes (Hospitalization, Other)
  Sender: FDA-Public Use
  Company Number: US-UCBSA-8007687

PATIENT
  Sex: Female
  Weight: 76 kg

DRUGS (16)
  1. KEPPRA [Suspect]
     Indication: EPILEPSY
     Route: 048
     Dates: start: 1999, end: 200811
  2. KEPPRA [Suspect]
     Indication: CRANIOCEREBRAL INJURY
     Route: 048
     Dates: start: 1999, end: 200811
  3. TEGRETOL XR [Suspect]
     Indication: EPILEPSY
     Dosage: EXTENDED RELEASE TABLET
  4. TEGRETOL XR [Suspect]
     Indication: CRANIOCEREBRAL INJURY
     Dosage: EXTENDED RELEASE TABLET
  5. ZYPREXA [Suspect]
     Indication: DEPRESSION
     Dosage: UNKNOWN DOSE
  6. DEPAKOTE [Suspect]
     Indication: CONVULSION
     Dosage: UNKNOWN DOSE
  7. NOVOLOG [Suspect]
     Indication: DIABETES MELLITUS
  8. DILANTIN [Suspect]
  9. LAMICTAL [Concomitant]
     Indication: EPILEPSY
     Dosage: 150 MG IN THE MORNING AND ONE AND HALF TABLET OF 150 MG AT NIGHT
     Route: 048
     Dates: start: 200309
  10. NEURONTIN [Concomitant]
     Indication: CONVULSION
  11. INSULIN [Concomitant]
     Indication: BLOOD GLUCOSE INCREASED
     Dosage: UNKNOWN DOSE
     Dates: start: 2001
  12. SYNTHROID [Concomitant]
     Indication: HYPOTHYROIDISM
  13. FOLIC ACID [Concomitant]
  14. PANTOPRAZOLE [Concomitant]
     Indication: GASTROOESOPHAGEAL REFLUX DISEASE
  15. ALTACE [Concomitant]
     Indication: BLOOD PRESSURE ABNORMAL
  16. CRESTOR [Concomitant]
     Indication: BLOOD CHOLESTEROL INCREASED
     Dosage: AT NIGHT

REACTIONS (13)
  - Convulsion [Unknown]
  - Diabetes mellitus [Unknown]
  - Aggression [Unknown]
  - Hypothyroidism [Not Recovered/Not Resolved]
  - Depression [Unknown]
  - Hypertension [Not Recovered/Not Resolved]
  - Multi-organ disorder [Unknown]
  - Pancreatitis [Unknown]
  - Alopecia [Unknown]
  - Weight decreased [Unknown]
  - Speech disorder [Unknown]
  - Logorrhoea [Not Recovered/Not Resolved]
  - Tremor [Unknown]
